FAERS Safety Report 7500924-2 (Version None)
Quarter: 2011Q2

REPORT INFORMATION
  Report Type: 
  Country: None (occurrence: None)
  Receive Date: 20110524
  Receipt Date: 20110517
  Transmission Date: 20111010
  Serious: Yes (Other)
  Sender: FDA-Public Use
  Company Number: US-US-EMD SERONO, INC.-236906J08USA

PATIENT
  Sex: Female
  Weight: 82 kg

DRUGS (4)
  1. NASAL SPRAY [Concomitant]
     Indication: HYPERSENSITIVITY
     Dates: end: 20080801
  2. REBIF [Suspect]
     Indication: MULTIPLE SCLEROSIS
     Route: 058
     Dates: start: 20061106
  3. NAPROXEN (ALEVE) [Concomitant]
  4. SINGULAIR [Concomitant]

REACTIONS (3)
  - MULTIPLE SCLEROSIS RELAPSE [None]
  - ULCER [None]
  - PYREXIA [None]
